FAERS Safety Report 5366884-8 (Version None)
Quarter: 2007Q2

REPORT INFORMATION
  Report Type: 
  Country: None (occurrence: None)
  Receive Date: 20070622
  Receipt Date: 20061025
  Transmission Date: 20071010
  Serious: No
  Sender: FDA-Public Use
  Company Number: US-ASTRAZENECA-2006UW20595

PATIENT
  Age: 76 Year
  Sex: Female
  Weight: 63.5 kg

DRUGS (3)
  1. RHINOCORT [Suspect]
     Indication: RESPIRATORY TRACT INFECTION
     Dosage: 32 MCG, 1 SPRAY EACH NOSTRIL ONCE DAILY
     Route: 045
  2. RHINOCORT [Suspect]
     Indication: NASAL DISORDER
     Dosage: 32 MCG, 1 SPRAY EACH NOSTRIL ONCE DAILY
     Route: 045
  3. CARDIZEM [Concomitant]

REACTIONS (3)
  - BLOOD PRESSURE INCREASED [None]
  - DIZZINESS [None]
  - ERYTHEMA [None]
